FAERS Safety Report 6597818-6 (Version None)
Quarter: 2010Q1

REPORT INFORMATION
  Report Type: 
  Country: None (occurrence: None)
  Receive Date: 20100216
  Receipt Date: 20100204
  Transmission Date: 20100710
  Serious: Yes (Hospitalization)
  Sender: FDA-Public Use
  Company Number: 95085

PATIENT
  Age: 32 Year
  Sex: Female

DRUGS (1)
  1. MIDAZOLAM HCL [Suspect]
     Indication: OVERDOSE
     Dosage: 15MG IV
     Route: 042

REACTIONS (3)
  - COMA [None]
  - MEDICATION ERROR [None]
  - OVERDOSE [None]
